FAERS Safety Report 12921970 (Version 7)
Quarter: 2017Q2

REPORT INFORMATION
  Report Type: Report from Study
  Country: CN (occurrence: CN)
  Receive Date: 20161108
  Receipt Date: 20170426
  Transmission Date: 20170830
  Serious: Yes (Hospitalization)
  Sender: FDA-Public Use
  Company Number: CN-EISAI MEDICAL RESEARCH-EC-2016-022105

PATIENT
  Age: 22 Year
  Sex: Male
  Weight: 43.8 kg

DRUGS (8)
  1. URSODESOXYCHOLIC ACID [Concomitant]
     Active Substance: URSODIOL
  2. BICYCLOL [Concomitant]
     Active Substance: BICYCLOL
  3. LENVATINIB [Suspect]
     Active Substance: LENVATINIB
     Indication: HEPATOCELLULAR CARCINOMA
     Route: 048
     Dates: start: 20160926, end: 20160930
  4. REDUCED GLUTATHIONE [Concomitant]
  5. PROPRANOLOL HYDROCHLORIDE. [Concomitant]
     Active Substance: PROPRANOLOL HYDROCHLORIDE
  6. LENVATINIB [Suspect]
     Active Substance: LENVATINIB
     Route: 048
     Dates: start: 20161006, end: 20161104
  7. DIAMMONIUM GLYCYYRHIZINATE ENTERIC COATED CAPSULES [Concomitant]
  8. POLYENE PHOSPHATIDYLCHOLINE [Concomitant]
     Active Substance: PHOSPHOLIPID

REACTIONS (1)
  - Gastrointestinal haemorrhage [Recovered/Resolved]

NARRATIVE: CASE EVENT DATE: 20161104
